FAERS Safety Report 13081256 (Version 1)
Quarter: 2017Q1

REPORT INFORMATION
  Report Type: Report from Study
  Country: US (occurrence: US)
  Receive Date: 20170103
  Receipt Date: 20170103
  Transmission Date: 20170428
  Serious: Yes (Other)
  Sender: FDA-Public Use
  Company Number: US-TAKEDA-2016MPI011138

PATIENT

DRUGS (1)
  1. VELCADE [Suspect]
     Active Substance: BORTEZOMIB
     Indication: HODGKIN^S DISEASE
     Dosage: 1.3 MG/M2, UNK
     Route: 065
     Dates: start: 20040315, end: 20050223

REACTIONS (1)
  - Gastric ulcer haemorrhage [Unknown]
